FAERS Safety Report 6211332-9 (Version None)
Quarter: 2009Q2

REPORT INFORMATION
  Report Type: 
  Country: None (occurrence: None)
  Receive Date: 20090528
  Receipt Date: 20090515
  Transmission Date: 20091009
  Serious: No
  Sender: FDA-Public Use
  Company Number: 006464

PATIENT
  Age: 82 Year
  Sex: Female

DRUGS (9)
  1. PLETAL [Suspect]
     Indication: ARTERIOSCLEROSIS OBLITERANS
     Dosage: 100 MG, BID ORAL
     Route: 048
     Dates: start: 20080206, end: 20080630
  2. PLETAL [Suspect]
     Indication: ARTERIOSCLEROSIS OBLITERANS
     Dosage: 100 MG, BID ORAL
     Route: 048
     Dates: start: 20090306, end: 20090415
  3. BUFFERIN [Suspect]
     Dosage: 81 MG, QD ORAL
     Route: 048
     Dates: end: 20080430
  4. BUFFERIN [Suspect]
     Dosage: 81 MG, QD ORAL
     Route: 048
     Dates: start: 20080701
  5. MICARDIS [Concomitant]
  6. DILTIAZEM HYDROCHLORIDE [Concomitant]
  7. PRAVASTATIN [Concomitant]
  8. SIGMART (NICORANDIL) [Concomitant]
  9. DEPAS (ETIZOLAM) [Concomitant]

REACTIONS (2)
  - NEUTROPHIL COUNT DECREASED [None]
  - WHITE BLOOD CELL COUNT DECREASED [None]
